FAERS Safety Report 10508762 (Version 4)
Quarter: 2016Q1

REPORT INFORMATION
  Report Type: Other
  Country: CA (occurrence: CA)
  Receive Date: 20141009
  Receipt Date: 20160218
  Transmission Date: 20160525
  Serious: Yes (Hospitalization)
  Sender: FDA-Public Use
  Company Number: CA-SYMPLMED PHARMACEUTICALS-2014SYM00116

PATIENT

DRUGS (2)
  1. COVERSYL [Suspect]
     Active Substance: PERINDOPRIL
     Indication: PRODUCT USED FOR UNKNOWN INDICATION
     Dosage: UNK
     Route: 065
  2. REMICADE [Suspect]
     Active Substance: INFLIXIMAB
     Indication: ANKYLOSING SPONDYLITIS
     Dosage: 400 MG, EVERY 8 WEEKS
     Route: 042

REACTIONS (11)
  - Crohn^s disease [Recovered/Resolved]
  - Procedural site reaction [Recovered/Resolved]
  - Abdominal hernia [Recovered/Resolved]
  - Abdominal adhesions [Recovered/Resolved]
  - Post procedural complication [Recovered/Resolved]
  - Ileus [Recovered/Resolved]
  - Hypersensitivity [Recovered/Resolved]
  - Pulmonary oedema [Recovered/Resolved]
  - Intestinal obstruction [Recovered/Resolved]
  - Generalised oedema [Recovered/Resolved]
  - Gallbladder operation [Recovered/Resolved]

NARRATIVE: CASE EVENT DATE: 2014
